FAERS Safety Report 8256966-5 (Version None)
Quarter: 2012Q2

REPORT INFORMATION
  Report Type: 
  Country: None (occurrence: None)
  Receive Date: 20120403
  Receipt Date: 20120326
  Transmission Date: 20120825
  Serious: Yes (Hospitalization)
  Sender: FDA-Public Use
  Company Number: US-GLAXOSMITHKLINE-A0767969A

PATIENT
  Age: 45 Year
  Sex: Male
  Weight: 90.9 kg

DRUGS (3)
  1. AVANDIA [Suspect]
     Indication: TYPE 2 DIABETES MELLITUS
     Dosage: 4MG PER DAY
     Route: 048
     Dates: start: 20010101, end: 20070809
  2. GLYBURIDE [Concomitant]
  3. GLUCOPHAGE [Concomitant]

REACTIONS (22)
  - GRAND MAL CONVULSION [None]
  - PNEUMONIA [None]
  - CEREBRAL INFARCTION [None]
  - ANAEMIA [None]
  - TRANSIENT ISCHAEMIC ATTACK [None]
  - CARDIAC MURMUR [None]
  - PHARYNGITIS STREPTOCOCCAL [None]
  - COLON CANCER [None]
  - ORTHOSTATIC HYPOTENSION [None]
  - BRONCHITIS [None]
  - MYOCARDIAL INFARCTION [None]
  - CARDIAC FAILURE CONGESTIVE [None]
  - STAPHYLOCOCCAL SEPSIS [None]
  - ATRIOVENTRICULAR BLOCK [None]
  - LEFT VENTRICULAR HYPERTROPHY [None]
  - CEREBROVASCULAR ACCIDENT [None]
  - MITRAL VALVE DISEASE [None]
  - PATELLA FRACTURE [None]
  - TOOTH EXTRACTION [None]
  - SUBACUTE ENDOCARDITIS [None]
  - DEEP VEIN THROMBOSIS [None]
  - BLINDNESS CORTICAL [None]
